FAERS Safety Report 9275270 (Version 1)
Quarter: 2013Q2

REPORT INFORMATION
  Report Type: Spontaneous
  Country: ES (occurrence: ES)
  Receive Date: 20130507
  Receipt Date: 20130507
  Transmission Date: 20140414
  Serious: Yes (Other)
  Sender: FDA-Public Use
  Company Number: ES-ROCHE-1221560

PATIENT
  Age: 73 Year
  Sex: Female

DRUGS (4)
  1. BONVIVA [Suspect]
     Indication: OSTEOPOROSIS
     Route: 048
     Dates: start: 2008, end: 20130217
  2. ALENDRONATE SODIUM [Concomitant]
     Indication: OSTEOPOROSIS
     Route: 048
     Dates: start: 2005, end: 2008
  3. OSVICAL D [Concomitant]
     Route: 048
  4. SINTROM [Concomitant]
     Dosage: SINTROM 4MG
     Route: 048

REACTIONS (1)
  - Atypical femur fracture [Recovered/Resolved with Sequelae]
